FAERS Safety Report 5456744-6 (Version None)
Quarter: 2007Q3

REPORT INFORMATION
  Report Type: 
  Country: None (occurrence: None)
  Receive Date: 20070918
  Receipt Date: 20061122
  Transmission Date: 20080115
  Serious: No
  Sender: FDA-Public Use
  Company Number: US-ASTRAZENECA-2006UW26049

PATIENT
  Age: 61 Year
  Sex: Female
  Weight: 117.9 kg

DRUGS (6)
  1. SEROQUEL [Suspect]
     Indication: BIPOLAR DISORDER
     Dates: start: 20061201
  2. LOMOTIL [Concomitant]
  3. TYLENOL W/ CODEINE NO. 3 [Concomitant]
  4. SULAR [Concomitant]
  5. ASPIRIN [Concomitant]
  6. SUPPLEMENTS [Concomitant]

REACTIONS (2)
  - NIGHTMARE [None]
  - SOMNOLENCE [None]
